FAERS Safety Report 19146530 (Version 1)
Quarter: 2021Q2

REPORT INFORMATION
  Report Type: Spontaneous
  Country: CA (occurrence: CA)
  Receive Date: 20210416
  Receipt Date: 20210416
  Transmission Date: 20210717
  Serious: Yes (Life-Threatening, Hospitalization, Other)
  Sender: FDA-Public Use
  Company Number: CA-PFIZER INC-2021382417

PATIENT
  Age: 4 Year
  Sex: Female
  Weight: 13 kg

DRUGS (11)
  1. MAGNESIUM [Concomitant]
     Active Substance: MAGNESIUM
  2. CYCLOPHOSPHAMIDE. [Suspect]
     Active Substance: CYCLOPHOSPHAMIDE
     Indication: NEUROBLASTOMA
     Dosage: 1240 MG, EVERY 1 HOUR
     Route: 042
  3. DEXAMETHASONE. [Concomitant]
     Active Substance: DEXAMETHASONE
  4. DOXORUBICIN HYDROCHLORIDE INJECTION [Suspect]
     Active Substance: DOXORUBICIN HYDROCHLORIDE
     Indication: NEUROBLASTOMA
     Dosage: 15 MG, 1 EVERY 15 MINUTES
     Route: 042
  5. EMEND [Concomitant]
     Active Substance: APREPITANT
  6. ONDANSETRON [Concomitant]
     Active Substance: ONDANSETRON
  7. SODIUM PHOSPHATE [Concomitant]
     Active Substance: SODIUM PHOSPHATE
  8. VINCRISTINE SULFATE. [Suspect]
     Active Substance: VINCRISTINE SULFATE
     Indication: NEUROBLASTOMA
     Dosage: 0.3 MG, 1 EVERY 10 MINUTES
     Route: 042
  9. POLYETHYLENE GLYCOL;PROPYLENE GLYCOL [Concomitant]
  10. CALCIUM + VITAMIN D3 [Concomitant]
     Active Substance: CALCIUM CARBONATE\CHOLECALCIFEROL
  11. MESNA. [Concomitant]
     Active Substance: MESNA

REACTIONS (1)
  - Febrile neutropenia [Recovered/Resolved]
